FAERS Safety Report 6068313-8 (Version None)
Quarter: 2009Q1

REPORT INFORMATION
  Report Type: 
  Country: None (occurrence: None)
  Receive Date: 20090206
  Receipt Date: 20090203
  Transmission Date: 20090719
  Serious: Yes (Death)
  Sender: FDA-Public Use
  Company Number: PHBS2009JP00672

PATIENT
  Age: 60 Year
  Sex: Male

DRUGS (7)
  1. CYCLOSPORINE [Suspect]
     Indication: CORD BLOOD TRANSPLANT THERAPY
     Dosage: 3 MG/KG
     Route: 042
  2. FLUDARABINE PHOSPHATE [Suspect]
     Dosage: 125 MG/M2
  3. L-PAM [Suspect]
     Dosage: 80 MG/M2
  4. IRRADIATION [Concomitant]
     Dosage: 4 GY
  5. IMMUNOGLOBULINS [Concomitant]
     Route: 042
  6. CEFPIROME [Concomitant]
     Route: 042
  7. CEFEPIME [Concomitant]
     Route: 042

REACTIONS (2)
  - ALTERED STATE OF CONSCIOUSNESS [None]
  - TOXIC ENCEPHALOPATHY [None]
